FAERS Safety Report 16353403 (Version 1)
Quarter: 2019Q2

REPORT INFORMATION
  Report Type: Spontaneous
  Country: FR (occurrence: FR)
  Receive Date: 20190524
  Receipt Date: 20190524
  Transmission Date: 20190711
  Serious: Yes (Life-Threatening, Hospitalization, Other)
  Sender: FDA-Public Use
  Company Number: FR-MYLANLABS-2019M1048924

PATIENT
  Age: 21 Year
  Sex: Female

DRUGS (1)
  1. ROCURONIUM [Suspect]
     Active Substance: ROCURONIUM BROMIDE
     Indication: PRODUCT USED FOR UNKNOWN INDICATION
     Route: 065

REACTIONS (8)
  - Hypersensitivity myocarditis [Recovering/Resolving]
  - Cardiac arrest [Recovering/Resolving]
  - Congestive cardiomyopathy [Recovering/Resolving]
  - Shock [Recovering/Resolving]
  - Ventricular tachycardia [Recovering/Resolving]
  - Left ventricular dysfunction [Recovered/Resolved]
  - Pulmonary congestion [Recovering/Resolving]
  - Pulmonary oedema [Recovering/Resolving]
